FAERS Safety Report 12635342 (Version 2)
Quarter: 2016Q3

REPORT INFORMATION
  Report Type: Report from Study
  Country: DE (occurrence: DE)
  Receive Date: 20160808
  Receipt Date: 20160906
  Transmission Date: 20161109
  Serious: Yes (Hospitalization, Other)
  Sender: FDA-Public Use
  Company Number: DE-GILEAD-2016-0226404

PATIENT
  Age: 51 Year
  Sex: Male
  Weight: 67 kg

DRUGS (9)
  1. PRETERAX                           /01421201/ [Concomitant]
     Active Substance: INDAPAMIDE\PERINDOPRIL
  2. MYFENAX                            /00372303/ [Concomitant]
     Active Substance: DICLOFENAC DIETHYLAMINE
     Dosage: 250 MG, UNK
  3. BETAGALEN [Concomitant]
     Dosage: UNK
  4. CICLORAL [Concomitant]
     Active Substance: CYCLOSPORINE
     Dosage: 75 MG, UNK
  5. SANDIMMUN [Concomitant]
     Active Substance: CYCLOSPORINE
     Dosage: 10 MG, UNK
  6. SOFOSBUVIR [Suspect]
     Active Substance: SOFOSBUVIR
     Indication: CHRONIC HEPATITIS C
     Dosage: 400 MG, UNK
     Route: 048
     Dates: start: 20141126, end: 20150217
  7. OLYSIO [Concomitant]
     Active Substance: SIMEPREVIR
     Indication: CHRONIC HEPATITIS C
     Dosage: 150 MG, QD
     Route: 048
     Dates: start: 20141126, end: 20150217
  8. ACC AKUT [Concomitant]
     Active Substance: ACETYLCYSTEINE
     Dosage: 600 MG, PRN
  9. BENZBROMARON [Concomitant]
     Dosage: 100 MG, UNK

REACTIONS (1)
  - Lung infection [Recovered/Resolved]
